FAERS Safety Report 18351763 (Version 1)
Quarter: 2020Q4

REPORT INFORMATION
  Report Type: Spontaneous
  Country: DE (occurrence: DE)
  Receive Date: 20201007
  Receipt Date: 20201007
  Transmission Date: 20210114
  Serious: Yes (Hospitalization)
  Sender: FDA-Public Use
  Company Number: DE-TEVA-2020-DE-1835482

PATIENT
  Age: 19 Month
  Sex: Male

DRUGS (2)
  1. AGNUS CASTUS TBL [DIETARY SUPPLEMENT\HERBALS] [Suspect]
     Active Substance: DIETARY SUPPLEMENT\HERBALS
     Indication: ACCIDENTAL EXPOSURE TO PRODUCT BY CHILD
     Dosage: 1 DOSAGE FORMS DAILY; MEDICATION ERROR
     Route: 048
     Dates: start: 20200604, end: 20200604
  2. MIRTAZAPIN 15MG [Suspect]
     Active Substance: MIRTAZAPINE
     Indication: ACCIDENTAL EXPOSURE TO PRODUCT BY CHILD
     Dosage: 1 DOSAGE FORMS DAILY; MEDICATION ERROR
     Route: 048
     Dates: start: 20200604, end: 20200604

REACTIONS (4)
  - Miosis [Unknown]
  - Accidental exposure to product by child [Unknown]
  - Somnolence [Unknown]
  - Product administration error [Unknown]

NARRATIVE: CASE EVENT DATE: 20200604
